FAERS Safety Report 8734814 (Version 7)
Quarter: 2018Q1

REPORT INFORMATION
  Report Type: Spontaneous
  Country: US (occurrence: US)
  Receive Date: 20120821
  Receipt Date: 20180117
  Transmission Date: 20180509
  Serious: Yes (Other)
  Sender: FDA-Public Use
  Company Number: US-PFIZER INC-2012199787

PATIENT
  Age: 36 Year
  Sex: Female

DRUGS (3)
  1. RISPERDAL [Suspect]
     Active Substance: RISPERIDONE
     Dosage: UNK
  2. ZOLOFT [Suspect]
     Active Substance: SERTRALINE HYDROCHLORIDE
     Indication: DEPRESSION
     Dosage: UNK
     Dates: start: 1994, end: 2006
  3. ZOLOFT [Suspect]
     Active Substance: SERTRALINE HYDROCHLORIDE
     Dosage: 50 MG, UNK
     Dates: start: 1996

REACTIONS (22)
  - Drug hypersensitivity [Unknown]
  - Breast swelling [Unknown]
  - Vomiting [Unknown]
  - Musculoskeletal stiffness [Unknown]
  - Stress [Unknown]
  - Insomnia [Unknown]
  - Peripheral coldness [Unknown]
  - Confusional state [Unknown]
  - Hypoaesthesia [Unknown]
  - Extrasystoles [Unknown]
  - Abdominal pain upper [Unknown]
  - Feeling abnormal [Unknown]
  - Neck pain [Unknown]
  - Malaise [Unknown]
  - Disturbance in attention [Unknown]
  - Paraesthesia [Unknown]
  - Headache [Unknown]
  - Eye disorder [Unknown]
  - General physical health deterioration [Unknown]
  - Abortion spontaneous [Unknown]
  - Dyspnoea [Unknown]
  - Vision blurred [Unknown]

NARRATIVE: CASE EVENT DATE: 19990822
